FAERS Safety Report 18385770 (Version 1)
Quarter: 2020Q4

REPORT INFORMATION
  Report Type: Spontaneous
  Country: CN (occurrence: CN)
  Receive Date: 20201015
  Receipt Date: 20201015
  Transmission Date: 20210114
  Serious: Yes (Death, Other)
  Sender: FDA-Public Use
  Company Number: CN-LUPIN PHARMACEUTICALS INC.-2020-07303

PATIENT
  Age: 6 Year
  Sex: Male
  Weight: 21 kg

DRUGS (10)
  1. VANCOMYCIN [Suspect]
     Active Substance: VANCOMYCIN
     Indication: ANTIBIOTIC THERAPY
     Dosage: 0.4 GRAM, BID (Q12H)
     Route: 065
     Dates: start: 2019, end: 2019
  2. TAZOCIN [Suspect]
     Active Substance: PIPERACILLIN SODIUM\TAZOBACTAM SODIUM
     Indication: ANTIBIOTIC THERAPY
     Dosage: 2.25 GRAM, TID (TAZOCIN WAS CHANGED INTO TIENAM)
     Route: 065
     Dates: start: 2019, end: 2019
  3. TIENAM [Suspect]
     Active Substance: CILASTATIN SODIUM\IMIPENEM
     Indication: ANTIBIOTIC THERAPY
     Dosage: 0.68 GRAM, QID (Q6H)
     Route: 065
     Dates: start: 2019, end: 2019
  4. TIGECYCLINE. [Suspect]
     Active Substance: TIGECYCLINE
     Indication: ANTIBIOTIC THERAPY
     Dosage: 25 MILLIGRAM, BID (Q12H)
     Route: 065
     Dates: start: 2019, end: 2019
  5. TIGECYCLINE. [Suspect]
     Active Substance: TIGECYCLINE
     Dosage: 50 MILLIGRAM, BID (Q12H) (ACTION TAKEN: TIGECYCLINE CONTINUED AFTER DETECTION OF ADR)
     Route: 065
     Dates: start: 2019
  6. SULPERAZONE [Suspect]
     Active Substance: CEFOPERAZONE SODIUM\SULBACTAM SODIUM
     Indication: ANTIBIOTIC THERAPY
     Dosage: 1.5 GRAM, TID (Q8H)
     Route: 065
     Dates: start: 2019, end: 2019
  7. CICLOSPORIN [Suspect]
     Active Substance: CYCLOSPORINE
     Indication: ACUTE GRAFT VERSUS HOST DISEASE IN INTESTINE
     Dosage: UNK
     Route: 065
     Dates: start: 2019
  8. POSACONAZOLE [Concomitant]
     Active Substance: POSACONAZOLE
     Indication: ANTIFUNGAL PROPHYLAXIS
     Dosage: UNK
     Route: 065
     Dates: start: 2019
  9. METHYLPREDNISOLONE. [Suspect]
     Active Substance: METHYLPREDNISOLONE
     Indication: ACUTE GRAFT VERSUS HOST DISEASE IN INTESTINE
     Dosage: UNK
     Route: 065
     Dates: start: 2019
  10. LUCITANIB. [Suspect]
     Active Substance: LUCITANIB
     Indication: ACUTE GRAFT VERSUS HOST DISEASE IN INTESTINE
     Dosage: UNK
     Route: 065
     Dates: start: 2019

REACTIONS (6)
  - Pathogen resistance [Fatal]
  - Drug ineffective [Fatal]
  - Diarrhoea [Not Recovered/Not Resolved]
  - Haematochezia [Not Recovered/Not Resolved]
  - Escherichia bacteraemia [Fatal]
  - Escherichia urinary tract infection [Fatal]

NARRATIVE: CASE EVENT DATE: 2019
